FAERS Safety Report 16803607 (Version 3)
Quarter: 2020Q2

REPORT INFORMATION
  Report Type: Spontaneous
  Country: PT (occurrence: PT)
  Receive Date: 20190913
  Receipt Date: 20200629
  Transmission Date: 20200713
  Serious: Yes (Other)
  Sender: FDA-Public Use
  Company Number: PT-AUROBINDO-AUR-APL-2019-059719

PATIENT
  Age: 29 Year
  Sex: Female

DRUGS (7)
  1. ARIPIPRAZOLE. [Concomitant]
     Active Substance: ARIPIPRAZOLE
     Indication: DELUSION
  2. OLANZAPINE. [Suspect]
     Active Substance: OLANZAPINE
     Indication: DELUSION
     Dosage: UNK UNK, ONCE A DAY
     Route: 048
  3. ABILIFY MAINTENA [Suspect]
     Active Substance: ARIPIPRAZOLE
     Indication: DELUSIONAL DISORDER, UNSPECIFIED TYPE
     Dosage: 400 MG, EVERY MONTH
     Route: 065
  4. ARIPIPRAZOLE. [Concomitant]
     Active Substance: ARIPIPRAZOLE
     Indication: DELUSIONAL DISORDER, PERSECUTORY TYPE
     Dosage: 2.5 MILLIGRAM, ONCE A DAY
     Route: 048
  5. ARIPIPRAZOLE TABLETS [Suspect]
     Active Substance: ARIPIPRAZOLE
     Indication: DELUSIONAL DISORDER, UNSPECIFIED TYPE
     Dosage: 20 MILLIGRAM, ONCE A DAY
     Route: 048
  6. ARIPIPRAZOLE TABLETS [Suspect]
     Active Substance: ARIPIPRAZOLE
     Dosage: 2.5 MILLIGRAM, ONCE A DAY
     Route: 048
  7. OLANZAPINE. [Suspect]
     Active Substance: OLANZAPINE
     Indication: DELUSIONAL DISORDER, UNSPECIFIED TYPE
     Dosage: 20 MILLIGRAM, ONCE A DAY
     Route: 048

REACTIONS (10)
  - Pituitary amenorrhoea [Recovered/Resolved]
  - Amenorrhoea [Recovered/Resolved]
  - Breast discomfort [Recovered/Resolved]
  - Hyperprolactinaemia [Recovered/Resolved]
  - Hallucination, olfactory [Recovering/Resolving]
  - Product use in unapproved indication [Unknown]
  - Galactorrhoea [Recovered/Resolved]
  - Symptom recurrence [Recovering/Resolving]
  - Impaired quality of life [Recovered/Resolved]
  - Delusion [Recovering/Resolving]
